FAERS Safety Report 19495750 (Version 2)
Quarter: 2021Q3

REPORT INFORMATION
  Report Type: Spontaneous
  Country: US (occurrence: US)
  Receive Date: 20210706
  Receipt Date: 20210817
  Transmission Date: 20211014
  Serious: Yes (Life-Threatening, Hospitalization, Other)
  Sender: FDA-Public Use
  Company Number: US-HIKMA PHARMACEUTICALS USA INC.-US-H14001-21-54807

PATIENT
  Age: 61 Year
  Sex: Female

DRUGS (7)
  1. FENTANYL. [Suspect]
     Active Substance: FENTANYL
     Dosage: MAXIMIZED TO 300 UG/H ON MECHANICAL VENTILATION DAY 5
     Route: 041
  2. FENTANYL. [Suspect]
     Active Substance: FENTANYL
     Indication: SEDATIVE THERAPY
     Route: 041
  3. FENTANYL. [Suspect]
     Active Substance: FENTANYL
     Dosage: 75 UG/H PER DAY
     Route: 041
  4. MIDAZOLAM. [Concomitant]
     Active Substance: MIDAZOLAM
     Indication: SEDATIVE THERAPY
     Route: 041
  5. FENTANYL. [Suspect]
     Active Substance: FENTANYL
     Dosage: TITRATED DOWN RAPIDLY OVER A 3?HOUR PERIOD
     Route: 041
  6. MIDAZOLAM. [Concomitant]
     Active Substance: MIDAZOLAM
     Route: 041
  7. LACTATED RINGERS SOLUTION [Concomitant]
     Active Substance: CALCIUM CHLORIDE\POTASSIUM CHLORIDE\SODIUM CHLORIDE\SODIUM LACTATE
     Indication: PRODUCT USED FOR UNKNOWN INDICATION
     Dosage: UNKNOWN
     Route: 042

REACTIONS (5)
  - Muscle rigidity [Recovered/Resolved]
  - Hypoventilation [Recovered/Resolved]
  - Hypoxia [Recovered/Resolved]
  - Cyanosis [Recovered/Resolved]
  - Airway peak pressure increased [Recovered/Resolved]
